FAERS Safety Report 13798270 (Version 1)
Quarter: 2017Q3

REPORT INFORMATION
  Report Type: Spontaneous
  Country: US (occurrence: US)
  Receive Date: 20170726
  Receipt Date: 20170726
  Transmission Date: 20171127
  Serious: Yes (Hospitalization)
  Sender: FDA-Public Use
  Company Number: None

PATIENT
  Age: 62 Year
  Sex: Female

DRUGS (1)
  1. WARFARIN [Suspect]
     Active Substance: WARFARIN
     Indication: ATRIAL FIBRILLATION
     Route: 048
     Dates: start: 20150625, end: 20170612

REACTIONS (6)
  - Fatigue [None]
  - Gastric haemorrhage [None]
  - Haemoglobin decreased [None]
  - Anticoagulation drug level above therapeutic [None]
  - Dizziness [None]
  - Haematocrit decreased [None]

NARRATIVE: CASE EVENT DATE: 20170612
